FAERS Safety Report 16260745 (Version 1)
Quarter: 2019Q2

REPORT INFORMATION
  Report Type: Spontaneous
  Country: US (occurrence: US)
  Receive Date: 20190501
  Receipt Date: 20190501
  Transmission Date: 20190711
  Serious: Yes (Life-Threatening, Other)
  Sender: FDA-Public Use
  Company Number: US-PFIZER INC-2019172223

PATIENT
  Age: 66 Year
  Sex: Male

DRUGS (1)
  1. BENZOCAINE. [Suspect]
     Active Substance: BENZOCAINE
     Indication: ECHOCARDIOGRAM
     Dosage: UNK (0.5 SECOND)
     Route: 061

REACTIONS (1)
  - Methaemoglobinaemia [Recovering/Resolving]
